FAERS Safety Report 17390926 (Version 2)
Quarter: 2020Q2

REPORT INFORMATION
  Report Type: Report from Study
  Country: CA (occurrence: CA)
  Receive Date: 20200207
  Receipt Date: 20200521
  Transmission Date: 20200713
  Serious: Yes (Other)
  Sender: FDA-Public Use
  Company Number: CA-JNJFOC-20200149427

PATIENT
  Sex: Female
  Weight: 61 kg

DRUGS (4)
  1. STELARA [Suspect]
     Active Substance: USTEKINUMAB
     Route: 058
     Dates: start: 20181214
  2. STELARA [Suspect]
     Active Substance: USTEKINUMAB
     Dosage: IV REINDUCTION
     Route: 058
  3. STELARA [Suspect]
     Active Substance: USTEKINUMAB
     Indication: CROHN^S DISEASE
     Route: 058
     Dates: start: 20191005
  4. PENICILLIN NOS [Suspect]
     Active Substance: PENICILLIN
     Indication: PRODUCT USED FOR UNKNOWN INDICATION
     Route: 065

REACTIONS (3)
  - Clostridium difficile infection [Unknown]
  - Product use issue [Unknown]
  - Off label use [Unknown]
